FAERS Safety Report 12068115 (Version 1)
Quarter: 2016Q1

REPORT INFORMATION
  Report Type: Spontaneous
  Country: US (occurrence: US)
  Receive Date: 20160211
  Receipt Date: 20160211
  Transmission Date: 20160526
  Serious: No
  Sender: FDA-Public Use
  Company Number: US-SMITH AND NEPHEW, INC-2015SMT00333

PATIENT
  Sex: Female
  Weight: 81.63 kg

DRUGS (2)
  1. UNSPECIFIED MEDICATIONS [Concomitant]
     Active Substance: UNSPECIFIED INGREDIENT
  2. REGRANEX [Suspect]
     Active Substance: BECAPLERMIN
     Indication: WOUND
     Dosage: UNK UNK, 1X/DAY
     Route: 061
     Dates: start: 201508, end: 20150903

REACTIONS (3)
  - Application site discharge [Recovering/Resolving]
  - Application site pain [Recovering/Resolving]
  - Wound complication [Recovering/Resolving]

NARRATIVE: CASE EVENT DATE: 2015
